FAERS Safety Report 19377755 (Version 2)
Quarter: 2021Q2

REPORT INFORMATION
  Report Type: Spontaneous
  Country: NL (occurrence: NL)
  Receive Date: 20210605
  Receipt Date: 20210618
  Transmission Date: 20210717
  Serious: Yes (Death, Hospitalization, Other)
  Sender: FDA-Public Use
  Company Number: NL-ACCORD-227359

PATIENT
  Age: 81 Year
  Sex: Male
  Weight: 75 kg

DRUGS (12)
  1. IRON [Concomitant]
     Active Substance: IRON
     Dosage: TABLET, 200 MG (MILLIGRAM)
  2. CLOPIDOGREL [Suspect]
     Active Substance: CLOPIDOGREL BISULFATE
     Indication: ACUTE MYOCARDIAL INFARCTION
     Dosage: 1 X PER DAY 1 PIECE, 75 MG
     Dates: start: 202006, end: 20210312
  3. MACROGOL/MACROGOL STEARATE [Concomitant]
     Active Substance: POLYETHYLENE GLYCOLS
     Dosage: POWDER FOR ORAL SOLUTION
  4. ATORVASTATIN [Concomitant]
     Active Substance: ATORVASTATIN
     Dosage: TABLET, 40 MG (MILLIGRAM)
  5. FURABID [Concomitant]
     Active Substance: NITROFURANTOIN
     Dosage: CAPSULE MGA 100MG / FURABID CAPSULE MGA 100MG
     Dates: start: 20210305
  6. RIVAROXABAN [Suspect]
     Active Substance: RIVAROXABAN
     Indication: ATRIAL FIBRILLATION
     Dosage: 1 X PER DAY 1 PIECE, 15 MG
     Dates: start: 201309, end: 20210312
  7. PFIZER?BIONTECH COVID?19 VACCINE [Suspect]
     Active Substance: TOZINAMERAN
     Indication: COVID-19 IMMUNISATION
     Dosage: SOLUTION FOR INJECTION / COVID?19 VACCINE PFIZER SOLUTION FOR INJECTION 0.3 M
     Dates: start: 20210306
  8. CARBIDOPA/LEVODOPA [Concomitant]
     Active Substance: CARBIDOPA\LEVODOPA
     Dosage: MODIFIED?RELEASE TABLET, 200/50 MG (MILLIGRAMS)
  9. METOPROLOL. [Concomitant]
     Active Substance: METOPROLOL
     Dosage: MODIFIED?RELEASE TABLET, 50 MG (MILLIGRAMS)
  10. APROVEL [Concomitant]
     Active Substance: IRBESARTAN
     Dosage: TABLET, 150 MG (MILLIGRAM)
  11. PANTOPRAZOLE [Concomitant]
     Active Substance: PANTOPRAZOLE
     Dosage: GASTRO?RESISTANT TABLET, 20 MG (MILLIGRAMS)
  12. BENSERAZIDE/LEVODOPA [Concomitant]
     Active Substance: BENSERAZIDE\LEVODOPA
     Dosage: TABLET, 100/25 MG (MILLIGRAM)

REACTIONS (2)
  - Quadriplegia [Fatal]
  - Spinal epidural haemorrhage [Fatal]

NARRATIVE: CASE EVENT DATE: 20210311
